FAERS Safety Report 7366938-0 (Version None)
Quarter: 2011Q1

REPORT INFORMATION
  Report Type: 
  Country: None (occurrence: None)
  Receive Date: 20110310
  Receipt Date: 20110223
  Transmission Date: 20110831
  Serious: Yes (Other)
  Sender: FDA-Public Use
  Company Number: AUR-APL-2011-00566

PATIENT
  Age: 86 Year
  Sex: Male

DRUGS (4)
  1. LOSARTAN POTASSIUM AND HYDROCHLOROTHIAZIDE [Concomitant]
  2. SIMVASTATIN [Concomitant]
  3. ALBYL-E [Concomitant]
  4. CARVEDILOL [Suspect]
     Indication: HYPERTENSION
     Dosage: 12.5MG-TID-ORAL
     Route: 048
     Dates: start: 20040101

REACTIONS (3)
  - THROMBOCYTOPENIA [None]
  - RENAL FAILURE [None]
  - BLOOD CHOLESTEROL DECREASED [None]
